FAERS Safety Report 6255733-1 (Version None)
Quarter: 2009Q3

REPORT INFORMATION
  Report Type: 
  Country: None (occurrence: None)
  Receive Date: 20090701
  Receipt Date: 20090619
  Transmission Date: 20100115
  Serious: Yes (Death)
  Sender: FDA-Public Use
  Company Number: 2009AL004234

PATIENT
  Age: 82 Year
  Sex: Male

DRUGS (15)
  1. DIAZEPAM TAB [Suspect]
     Dosage: 5 MG; IV
     Route: 042
     Dates: start: 20081216, end: 20081216
  2. METFORMIN HCL [Concomitant]
  3. GLICLAZIDE [Concomitant]
  4. TAMSULOSIN HCL [Concomitant]
  5. FUROSEMIDE [Concomitant]
  6. GENTAMICIN [Concomitant]
  7. FENTANYL [Concomitant]
  8. PROPOFOL [Concomitant]
  9. ATRACURIUM [Concomitant]
  10. ONDANSETRON [Concomitant]
  11. MORPHINE [Concomitant]
  12. METARAMINOL BITARTRATE [Concomitant]
  13. PARACETAMOL [Concomitant]
  14. ROBINUL-N [Concomitant]
  15. SEVOFLURANE [Concomitant]

REACTIONS (4)
  - HYPERSENSITIVITY [None]
  - MYOCARDIAL INFARCTION [None]
  - RESPIRATORY RATE DECREASED [None]
  - UPPER AIRWAY OBSTRUCTION [None]
